FAERS Safety Report 8995425 (Version 1)
Quarter: 2013Q1

REPORT INFORMATION
  Report Type: Spontaneous
  Country: US (occurrence: US)
  Receive Date: 20130103
  Receipt Date: 20130103
  Transmission Date: 20140127
  Serious: No
  Sender: FDA-Public Use
  Company Number: US-ABBOTT-12P-163-0921386-00

PATIENT
  Sex: Female
  Weight: 79.45 kg

DRUGS (1)
  1. SYNTHROID [Suspect]
     Indication: PRODUCT USED FOR UNKNOWN INDICATION

REACTIONS (6)
  - Product physical issue [Unknown]
  - Product colour issue [Unknown]
  - Tablet physical issue [Unknown]
  - Swelling [Unknown]
  - Fatigue [Unknown]
  - Heart rate increased [Unknown]
